FAERS Safety Report 5155976-4 (Version None)
Quarter: 2006Q4

REPORT INFORMATION
  Report Type: 
  Country: None (occurrence: None)
  Receive Date: 20061122
  Receipt Date: 20060802
  Transmission Date: 20070319
  Serious: Yes (Other)
  Sender: FDA-Public Use
  Company Number: PHRM2006FR02298

PATIENT
  Age: 80 Year
  Sex: Male
  Weight: 61 kg

DRUGS (8)
  1. LEVOTHYROXINE SODIUM [Concomitant]
     Dosage: 50 MG, QD
     Route: 048
  2. LASIX [Concomitant]
     Dosage: 40 MG, QD
     Route: 048
  3. ASPEGIC 1000 [Concomitant]
     Dosage: 250 MG, QD
     Route: 048
  4. OMEPRAZOLE [Concomitant]
     Dosage: 20 MG, QD
     Route: 048
  5. TAHOR [Concomitant]
     Dosage: 80 MG, QD
     Route: 048
  6. EXELON [Suspect]
     Indication: DEMENTIA ALZHEIMER'S TYPE
     Dosage: 4.5 MG, BID
     Route: 048
     Dates: start: 20050101, end: 20060101
  7. EFFEXOR [Suspect]
     Route: 048
  8. ANTI-PARKINSON AGENTS [Concomitant]
     Indication: TREMOR

REACTIONS (4)
  - AGGRESSION [None]
  - ANGER [None]
  - PARANOIA [None]
  - PSYCHOMOTOR HYPERACTIVITY [None]
